FAERS Safety Report 5743450-3 (Version None)
Quarter: 2008Q2

REPORT INFORMATION
  Report Type: 
  Country: None (occurrence: None)
  Receive Date: 20080519
  Receipt Date: 20080519
  Transmission Date: 20081010
  Serious: Yes (Other)
  Sender: FDA-Public Use
  Company Number: None

PATIENT
  Age: 63 Year
  Sex: Female
  Weight: 81.6475 kg

DRUGS (3)
  1. FENTANYL TRANSDERMAL SYSTEM [Suspect]
     Indication: ARTHRITIS
     Dosage: APPLY 1 PATCH EVERY 72 HOURS
     Dates: start: 20020101
  2. FENTANYL TRANSDERMAL SYSTEM [Suspect]
     Indication: BONE DISORDER
     Dosage: APPLY 1 PATCH EVERY 72 HOURS
     Dates: start: 20020101
  3. FENTANYL TRANSDERMAL SYSTEM [Suspect]
     Indication: LUNG NEOPLASM MALIGNANT
     Dosage: APPLY 1 PATCH EVERY 72 HOURS
     Dates: start: 20020101

REACTIONS (3)
  - APPLICATION SITE ULCER [None]
  - DEVICE FAILURE [None]
  - PHARMACEUTICAL PRODUCT COMPLAINT [None]
